FAERS Safety Report 20484013 (Version 1)
Quarter: 2022Q1

REPORT INFORMATION
  Report Type: Spontaneous
  Country: US (occurrence: None)
  Receive Date: 20220216
  Receipt Date: 20220216
  Transmission Date: 20220423
  Serious: Yes (Death)
  Sender: FDA-Public Use
  Company Number: None

PATIENT
  Age: 54 Year
  Sex: Female
  Weight: 59.13 kg

DRUGS (6)
  1. HEMADY [Suspect]
     Active Substance: DEXAMETHASONE
     Indication: Pancreatic carcinoma
     Dosage: FREQUENCY : DAILY;?
     Route: 048
     Dates: start: 20211009, end: 20220126
  2. Mophine sulfate 100mg/5mL [Concomitant]
     Dates: start: 20220212, end: 20220214
  3. LORAZEPAM [Concomitant]
     Active Substance: LORAZEPAM
     Dates: start: 20220212, end: 20220214
  4. Megestrol 625mg/5mL [Concomitant]
     Dates: start: 20220202, end: 20220214
  5. PANTOPRAZOLE SODIUM [Concomitant]
     Active Substance: PANTOPRAZOLE SODIUM
     Dates: start: 20220120, end: 20220214
  6. Sprinolactone 50mg [Concomitant]
     Dates: start: 20220120, end: 20220214

REACTIONS (1)
  - Death [None]

NARRATIVE: CASE EVENT DATE: 20220214
